FAERS Safety Report 20780830 (Version 1)
Quarter: 2022Q2

REPORT INFORMATION
  Report Type: Spontaneous
  Country: US (occurrence: US)
  Receive Date: 20220504
  Receipt Date: 20220504
  Transmission Date: 20220721
  Serious: Yes (Other)
  Sender: FDA-Public Use
  Company Number: US-SA-SAC20220502000284

PATIENT
  Age: 50 Year
  Sex: Male

DRUGS (1)
  1. ZANTAC [Suspect]
     Active Substance: RANITIDINE HYDROCHLORIDE
     Dosage: UNKNOWN AT THIS TIME
     Dates: start: 200302, end: 201204

REACTIONS (4)
  - Colorectal cancer [Unknown]
  - Hepatic cancer [Unknown]
  - Pancreatic carcinoma [Unknown]
  - Gastric cancer [Unknown]

NARRATIVE: CASE EVENT DATE: 20140501
